FAERS Safety Report 9285264 (Version 3)
Quarter: 2013Q3

REPORT INFORMATION
  Report Type: Spontaneous
  Country: US (occurrence: US)
  Receive Date: 20130513
  Receipt Date: 20130730
  Transmission Date: 20140515
  Serious: No
  Sender: FDA-Public Use
  Company Number: US-TEVA-403970USA

PATIENT
  Age: 43 Year
  Sex: Male

DRUGS (3)
  1. NUVIGIL [Suspect]
     Indication: CIRCADIAN RHYTHM SLEEP DISORDER
     Route: 048
  2. NUVIGIL [Suspect]
     Indication: SLEEP APNOEA SYNDROME
  3. PRINZIDE [Concomitant]

REACTIONS (1)
  - Headache [Recovered/Resolved]
